FAERS Safety Report 5521294-5 (Version None)
Quarter: 2007Q4

REPORT INFORMATION
  Report Type: 
  Country: None (occurrence: None)
  Receive Date: 20071119
  Receipt Date: 20070202
  Transmission Date: 20080405
  Serious: No
  Sender: FDA-Public Use
  Company Number: US-BOEHRINGER INGELHEIM PHARMACEUTICALS, INC.-2007-BP-00921BP

PATIENT
  Sex: Male

DRUGS (4)
  1. ZANTAC 150 [Suspect]
     Indication: GASTROOESOPHAGEAL REFLUX DISEASE
     Route: 048
  2. ZANTAC 150 [Suspect]
  3. ZOCOR [Concomitant]
  4. FOSAMAX [Concomitant]

REACTIONS (1)
  - HEADACHE [None]
